FAERS Safety Report 17794988 (Version 4)
Quarter: 2020Q3

REPORT INFORMATION
  Report Type: Report from Study
  Country: US (occurrence: US)
  Receive Date: 20200515
  Receipt Date: 20200805
  Transmission Date: 20201102
  Serious: Yes (Hospitalization, Other)
  Sender: FDA-Public Use
  Company Number: US-VALIDUS PHARMACEUTICALS LLC-US-2020VAL000377

PATIENT

DRUGS (3)
  1. AGALSIDASE BETA [Suspect]
     Active Substance: AGALSIDASE BETA
     Indication: FABRY^S DISEASE
     Dosage: 90 MG, QOW
     Route: 042
     Dates: start: 20200109
  2. AGALSIDASE BETA [Suspect]
     Active Substance: AGALSIDASE BETA
     Dosage: 90 MG, QOW
     Route: 042
     Dates: start: 20200127
  3. FUROSEMIDE. [Suspect]
     Active Substance: FUROSEMIDE
     Indication: PRODUCT USED FOR UNKNOWN INDICATION
     Dosage: UNK
     Route: 065

REACTIONS (13)
  - Fluid retention [Unknown]
  - Troponin increased [Unknown]
  - Dermatitis contact [Unknown]
  - Electrocardiogram abnormal [Unknown]
  - Antipsychotic drug level below therapeutic [Unknown]
  - Drug hypersensitivity [Unknown]
  - Cardiac stress test abnormal [Unknown]
  - Blood potassium decreased [Unknown]
  - Throat irritation [Unknown]
  - SARS-CoV-2 test positive [Unknown]
  - Dyspepsia [Unknown]
  - Hypersensitivity [Unknown]
  - Product dose omission issue [Unknown]

NARRATIVE: CASE EVENT DATE: 2020
